FAERS Safety Report 6655706-0 (Version None)
Quarter: 2010Q1

REPORT INFORMATION
  Report Type: 
  Country: None (occurrence: None)
  Receive Date: 20100326
  Receipt Date: 20100326
  Transmission Date: 20100710
  Serious: Yes (Hospitalization)
  Sender: FDA-Public Use
  Company Number: None

PATIENT
  Sex: Female
  Weight: 55.7924 kg

DRUGS (1)
  1. ACTOS [Suspect]
     Indication: DIABETES MELLITUS
     Dosage: 30 MG 1 X DAY
     Dates: start: 20100126

REACTIONS (3)
  - BLOOD PRESSURE INCREASED [None]
  - DIZZINESS [None]
  - SINUSITIS [None]
